FAERS Safety Report 13819901 (Version 1)
Quarter: 2017Q3

REPORT INFORMATION
  Report Type: Spontaneous
  Country: GR (occurrence: GR)
  Receive Date: 20170731
  Receipt Date: 20170731
  Transmission Date: 20171127
  Serious: Yes (Life-Threatening, Other)
  Sender: FDA-Public Use
  Company Number: GR-GLENMARK PHARMACEUTICALS-2017GMK028307

PATIENT
  Age: 75 Year
  Sex: Male

DRUGS (6)
  1. AMIODARONE [Suspect]
     Active Substance: AMIODARONE
     Dosage: CHRONIC PER OS INTAKE
     Route: 048
     Dates: start: 2013
  2. METOPROLOL. [Suspect]
     Active Substance: METOPROLOL
     Indication: VENTRICULAR ARRHYTHMIA
     Dosage: HIGH-DOSE BETA-BLOCKER AGENTS
     Route: 065
     Dates: start: 2013
  3. SOTALOL. [Suspect]
     Active Substance: SOTALOL
     Indication: VENTRICULAR ARRHYTHMIA
     Dosage: HIGH-DOSE BETA-BLOCKER AGENTS
     Route: 065
     Dates: start: 2013
  4. CARVEDILOL. [Suspect]
     Active Substance: CARVEDILOL
     Indication: VENTRICULAR ARRHYTHMIA
     Dosage: HIGH-DOSE BETA-BLOCKER AGENTS
     Route: 065
     Dates: start: 2013
  5. BISOPROLOL [Suspect]
     Active Substance: BISOPROLOL
     Indication: VENTRICULAR ARRHYTHMIA
     Dosage: HIGH-DOSE BETA-BLOCKER AGENTS
     Route: 065
     Dates: start: 2013
  6. AMIODARONE [Suspect]
     Active Substance: AMIODARONE
     Indication: VENTRICULAR ARRHYTHMIA
     Dosage: UNK
     Route: 042
     Dates: start: 2013

REACTIONS (1)
  - Drug ineffective [Unknown]
